FAERS Safety Report 5039003-5 (Version None)
Quarter: 2006Q2

REPORT INFORMATION
  Report Type: 
  Country: None (occurrence: None)
  Receive Date: 20060628
  Receipt Date: 20060628
  Transmission Date: 20061013
  Serious: Yes (Hospitalization)
  Sender: FDA-Public Use
  Company Number: None

PATIENT
  Sex: Male
  Weight: 70 kg

DRUGS (2)
  1. WARFARIN SODIUM [Suspect]
     Indication: ANTICOAGULANT THERAPY
     Dosage: 5 MG DAILY PO
     Route: 048
     Dates: start: 20060213, end: 20060606
  2. WARFARIN SODIUM [Suspect]
     Indication: ATRIAL FIBRILLATION
     Dosage: 5 MG DAILY PO
     Route: 048
     Dates: start: 20060213, end: 20060606

REACTIONS (3)
  - FALL [None]
  - HAEMORRHAGE INTRACRANIAL [None]
  - INTERNATIONAL NORMALISED RATIO INCREASED [None]
